FAERS Safety Report 11100652 (Version 3)
Quarter: 2015Q2

REPORT INFORMATION
  Report Type: Spontaneous
  Country: US (occurrence: US)
  Receive Date: 20150508
  Receipt Date: 20150617
  Transmission Date: 20150821
  Serious: Yes (Other)
  Sender: FDA-Public Use
  Company Number: US-SA-2015SA060567

PATIENT
  Age: 55 Year
  Sex: Male

DRUGS (5)
  1. LANTUS [Suspect]
     Active Substance: INSULIN GLARGINE
     Route: 065
     Dates: start: 2011
  2. LANTUS SOLOSTAR [Suspect]
     Active Substance: INSULIN GLARGINE
     Indication: TYPE 2 DIABETES MELLITUS
     Dosage: DOSE:70 UNIT(S)
     Route: 065
     Dates: start: 2013
  3. HUMALOG [Concomitant]
     Active Substance: INSULIN LISPRO
  4. NOVOLOG [Concomitant]
     Active Substance: INSULIN ASPART
  5. SOLOSTAR [Concomitant]
     Active Substance: DEVICE
     Indication: TYPE 2 DIABETES MELLITUS

REACTIONS (10)
  - Optic nerve disorder [Unknown]
  - Nausea [Unknown]
  - Surgery [Unknown]
  - Eye pain [Unknown]
  - Leukaemia [Unknown]
  - Post procedural haemorrhage [Unknown]
  - Asthenia [Unknown]
  - Underdose [Unknown]
  - Diabetic retinopathy [Unknown]
  - Cough [Unknown]

NARRATIVE: CASE EVENT DATE: 201209
